FAERS Safety Report 8209275-4 (Version None)
Quarter: 2012Q1

REPORT INFORMATION
  Report Type: 
  Country: None (occurrence: None)
  Receive Date: 20120314
  Receipt Date: 20120306
  Transmission Date: 20120608
  Serious: Yes (Other)
  Sender: FDA-Public Use
  Company Number: US-BAYER-2011-063093

PATIENT
  Age: 42 Year
  Sex: Female
  Weight: 65.76 kg

DRUGS (11)
  1. PERCOCET [Concomitant]
     Dosage: UNK
     Route: 048
     Dates: start: 20091015
  2. ASPIRIN [Concomitant]
  3. LIDOCAINE [Concomitant]
     Dosage: 1 %, UNK
     Dates: start: 20091015
  4. ANCEF [Concomitant]
     Dosage: 1 G, UNK
     Route: 042
  5. YAZ [Suspect]
     Dosage: UNK
     Dates: start: 20090831, end: 20091101
  6. TORADOL [Concomitant]
     Dosage: 30 MG, UNK
     Route: 042
     Dates: start: 20091015
  7. MARCAINE HYDROCHLORIDE W/ EPINEPHRINE [Concomitant]
     Dosage: 0.25 UNK, UNK
     Dates: start: 20091015
  8. CODEINE SULFATE [Concomitant]
     Dosage: UNK
     Dates: start: 20091015
  9. REGLAN [Concomitant]
     Dosage: 10 MG, UNK
     Route: 042
     Dates: start: 20091015
  10. ROXICET [Concomitant]
     Dosage: UNK
     Route: 048
     Dates: start: 20091015
  11. MORPHINE [Concomitant]
     Dosage: UNK
     Route: 042
     Dates: start: 20091015

REACTIONS (6)
  - EMOTIONAL DISTRESS [None]
  - PAIN [None]
  - ANXIETY [None]
  - INJURY [None]
  - GENERAL PHYSICAL HEALTH DETERIORATION [None]
  - DEEP VEIN THROMBOSIS [None]
